FAERS Safety Report 7892943-1 (Version None)
Quarter: 2011Q4

REPORT INFORMATION
  Report Type: 
  Country: None (occurrence: None)
  Receive Date: 20111104
  Receipt Date: 20111025
  Transmission Date: 20120403
  Serious: Yes (Hospitalization)
  Sender: FDA-Public Use
  Company Number: US-JNJFOC-20110510222

PATIENT
  Sex: Female
  Weight: 41.1 kg

DRUGS (17)
  1. PREDNISONE [Concomitant]
  2. ANTIBIOTICS [Suspect]
     Indication: INFLAMMATORY BOWEL DISEASE
  3. PROBIOTICS [Concomitant]
  4. GAS X [Concomitant]
  5. LACTAID [Concomitant]
  6. MESALAMINE [Suspect]
     Indication: COLITIS ULCERATIVE
     Route: 048
  7. IRON [Concomitant]
  8. SINGULAIR [Concomitant]
  9. SUDAFED NOS [Concomitant]
  10. PREVACID [Concomitant]
  11. REMICADE [Suspect]
     Indication: COLITIS ULCERATIVE
     Route: 042
     Dates: start: 20110510
  12. TYLENOL-500 [Concomitant]
  13. VITAMIN D [Concomitant]
  14. MULTI-VITAMINS [Concomitant]
  15. BENADRYL [Concomitant]
  16. REMICADE [Suspect]
     Route: 042
     Dates: start: 20090519
  17. FLUTICASONE PROPIONATE [Concomitant]
     Route: 055

REACTIONS (4)
  - DEHYDRATION [None]
  - HYPONATRAEMIA [None]
  - COXSACKIE VIRUS TEST POSITIVE [None]
  - CLOSTRIDIAL INFECTION [None]
